FAERS Safety Report 9513790 (Version 1)
Quarter: 2013Q3

REPORT INFORMATION
  Report Type: Spontaneous
  Country: US (occurrence: US)
  Receive Date: 20130910
  Receipt Date: 20130910
  Transmission Date: 20140515
  Serious: No
  Sender: FDA-Public Use
  Company Number: US-TEVA-431229USA

PATIENT
  Age: 34 Year
  Sex: Female

DRUGS (5)
  1. PLAN B [Suspect]
     Indication: POST COITAL CONTRACEPTION
     Dosage: 15 MILLIGRAM DAILY;
     Route: 048
     Dates: start: 20090719, end: 20090719
  2. FLAX SEED OIL [Concomitant]
     Indication: PREMENSTRUAL SYNDROME
  3. PRIMOSE OIL [Concomitant]
     Indication: PREMENSTRUAL SYNDROME
  4. DHEA [Concomitant]
     Indication: SUPPLEMENTATION THERAPY
  5. SUPPLEMENTS [Concomitant]

REACTIONS (1)
  - Menstruation irregular [Recovered/Resolved]
